FAERS Safety Report 9790954 (Version 1)
Quarter: 2013Q4

REPORT INFORMATION
  Report Type: Spontaneous
  Country: FR (occurrence: FR)
  Receive Date: 20131231
  Receipt Date: 20131231
  Transmission Date: 20140711
  Serious: Yes (Hospitalization)
  Sender: FDA-Public Use
  Company Number: FR-PFIZER INC-2013368434

PATIENT
  Age: 57 Year
  Sex: Male

DRUGS (2)
  1. RHINADVIL [Suspect]
     Dosage: UNK
     Route: 048
     Dates: start: 201309, end: 201309
  2. NIFLUGEL [Suspect]
     Indication: LIGAMENT SPRAIN
     Dosage: UNK
     Route: 061
     Dates: start: 201307, end: 201307

REACTIONS (2)
  - Immune thrombocytopenic purpura [Recovering/Resolving]
  - Fatigue [Unknown]
